FAERS Safety Report 12328783 (Version 1)
Quarter: 2016Q2

REPORT INFORMATION
  Report Type: Spontaneous
  Country: US (occurrence: US)
  Receive Date: 20160503
  Receipt Date: 20160503
  Transmission Date: 20160815
  Serious: No
  Sender: FDA-Public Use
  Company Number: US-BEH-2015050767

PATIENT
  Sex: Male
  Weight: 99 kg

DRUGS (31)
  1. FISH OIL [Concomitant]
     Active Substance: FISH OIL
  2. HIZENTRA [Suspect]
     Active Substance: HUMAN IMMUNOGLOBULIN G
     Indication: IMMUNODEFICIENCY
     Route: 058
  3. MUCINEX [Concomitant]
     Active Substance: GUAIFENESIN
  4. DIPHENHYDRAMINE. [Concomitant]
     Active Substance: DIPHENHYDRAMINE
  5. LIDOCAINE. [Concomitant]
     Active Substance: LIDOCAINE
  6. PROVENTIL HFA [Concomitant]
     Active Substance: ALBUTEROL SULFATE
  7. OXYGEN. [Concomitant]
     Active Substance: OXYGEN
  8. ASPIRIN. [Concomitant]
     Active Substance: ASPIRIN
  9. TAMSULOSIN HCL [Concomitant]
     Active Substance: TAMSULOSIN
  10. ALBUTEROL SULFATE. [Concomitant]
     Active Substance: ALBUTEROL SULFATE
  11. HIZENTRA [Suspect]
     Active Substance: HUMAN IMMUNOGLOBULIN G
     Indication: SELECTIVE IGA IMMUNODEFICIENCY
     Route: 058
  12. HIZENTRA [Suspect]
     Active Substance: HUMAN IMMUNOGLOBULIN G
     Indication: BRONCHIOLITIS
     Route: 058
  13. ALLOPURINOL. [Concomitant]
     Active Substance: ALLOPURINOL
  14. HERBAL NOS [Concomitant]
     Active Substance: HERBALS
  15. AZITHROMYCIN ANHYDROUS. [Concomitant]
     Active Substance: AZITHROMYCIN ANHYDROUS
  16. DALIRESP [Concomitant]
     Active Substance: ROFLUMILAST
  17. LOSARTAN POTASSIUM. [Concomitant]
     Active Substance: LOSARTAN POTASSIUM
  18. BUDESONIDE. [Concomitant]
     Active Substance: BUDESONIDE
  19. COLCHICINE. [Concomitant]
     Active Substance: COLCHICINE
  20. NEURONTIN [Concomitant]
     Active Substance: GABAPENTIN
  21. EPIPEN [Concomitant]
     Active Substance: EPINEPHRINE
  22. HIZENTRA [Suspect]
     Active Substance: HUMAN IMMUNOGLOBULIN G
     Indication: IMMUNODEFICIENCY
     Route: 058
  23. HIZENTRA [Suspect]
     Active Substance: HUMAN IMMUNOGLOBULIN G
     Indication: AUTOIMMUNE DISORDER
     Route: 058
  24. VITAMIN D [Concomitant]
     Active Substance: CHOLECALCIFEROL
  25. MORPHINE IR [Concomitant]
     Active Substance: MORPHINE
  26. ACETAMINOPHEN. [Concomitant]
     Active Substance: ACETAMINOPHEN
  27. MULTIVITAMIN [Concomitant]
     Active Substance: VITAMINS
  28. ACYCLOVIR. [Concomitant]
     Active Substance: ACYCLOVIR
  29. HIZENTRA [Suspect]
     Active Substance: HUMAN IMMUNOGLOBULIN G
     Indication: BRONCHIOLITIS
     Route: 058
  30. FUROSEMIDE. [Concomitant]
     Active Substance: FUROSEMIDE
  31. TOBRAMYCIN. [Concomitant]
     Active Substance: TOBRAMYCIN

REACTIONS (1)
  - Administration site induration [Recovered/Resolved]
